FAERS Safety Report 9362987 (Version 2)
Quarter: 2013Q2

REPORT INFORMATION
  Report Type: Spontaneous
  Country: US (occurrence: US)
  Receive Date: 20130624
  Receipt Date: 20130628
  Transmission Date: 20140414
  Serious: Yes (Death, Life-Threatening)
  Sender: FDA-Public Use
  Company Number: US-ROCHE-1240141

PATIENT
  Age: 68 Year
  Sex: Female
  Weight: 55 kg

DRUGS (9)
  1. ACTEMRA [Suspect]
     Indication: RHEUMATOID ARTHRITIS
     Route: 042
     Dates: start: 20130228
  2. ACTEMRA [Suspect]
     Route: 065
     Dates: start: 20130428
  3. ACTEMRA [Suspect]
     Route: 065
     Dates: start: 20130529
  4. ACTEMRA [Suspect]
     Route: 042
     Dates: start: 201306
  5. ACTEMRA [Suspect]
     Route: 042
  6. METHOTREXATE [Concomitant]
     Indication: RHEUMATOID ARTHRITIS
     Route: 065
  7. ORENCIA [Concomitant]
     Indication: RHEUMATOID ARTHRITIS
     Route: 065
  8. COUMADIN [Concomitant]
     Route: 048
  9. PREDNISONE [Concomitant]
     Indication: RHEUMATOID ARTHRITIS
     Route: 048

REACTIONS (3)
  - Pulmonary alveolar haemorrhage [Recovered/Resolved]
  - Hypersensitivity [Recovered/Resolved]
  - Lung infiltration [Fatal]
